FAERS Safety Report 12126631 (Version 2)
Quarter: 2020Q3

REPORT INFORMATION
  Report Type: Spontaneous
  Country: IN (occurrence: IN)
  Receive Date: 20160229
  Receipt Date: 20200728
  Transmission Date: 20201102
  Serious: No
  Sender: FDA-Public Use
  Company Number: IN-CIPLA LTD.-2016IN01517

PATIENT

DRUGS (3)
  1. RISPERIDONE. [Suspect]
     Active Substance: RISPERIDONE
     Indication: SCHIZOPHRENIA
     Dosage: 6 MG PER DAY IN DIVIDED DOSE
     Route: 048
     Dates: start: 2015, end: 2015
  2. RISPERIDONE. [Suspect]
     Active Substance: RISPERIDONE
     Dosage: 2 MG PER DAY
     Route: 048
     Dates: start: 2015, end: 2015
  3. RISPERIDONE. [Suspect]
     Active Substance: RISPERIDONE
     Dosage: 4 MG PER DAY
     Route: 048
     Dates: start: 2015, end: 2015

REACTIONS (8)
  - Skin exfoliation [Recovered/Resolved]
  - Eczema [Recovered/Resolved]
  - Pruritus [Unknown]
  - Skin ulcer [Recovered/Resolved]
  - Secretion discharge [Recovered/Resolved]
  - Skin abrasion [Recovered/Resolved]
  - Papule [Recovered/Resolved]
  - Rash [Recovered/Resolved]

NARRATIVE: CASE EVENT DATE: 2015
